FAERS Safety Report 9909967 (Version 1)
Quarter: 2014Q1

REPORT INFORMATION
  Report Type: Spontaneous
  Country: NL (occurrence: NL)
  Receive Date: 20140219
  Receipt Date: 20140219
  Transmission Date: 20141002
  Serious: Yes (Hospitalization)
  Sender: FDA-Public Use
  Company Number: NL-SA-2014SA020780

PATIENT
  Age: 88 Year
  Sex: Male

DRUGS (1)
  1. DESMOPRESSIN ACETATE [Suspect]
     Indication: POLYURIA
     Route: 048
     Dates: start: 20131212

REACTIONS (2)
  - Aortic valve stenosis [Recovering/Resolving]
  - Cardiac asthma [Recovering/Resolving]
